FAERS Safety Report 6475785-3 (Version None)
Quarter: 2009Q4

REPORT INFORMATION
  Report Type: 
  Country: None (occurrence: None)
  Receive Date: 20091204
  Receipt Date: 20091201
  Transmission Date: 20100525
  Serious: Yes (Life-Threatening)
  Sender: FDA-Public Use
  Company Number: US-ELI_LILLY_AND_COMPANY-US200912000940

PATIENT
  Age: 81 Year
  Sex: Female

DRUGS (2)
  1. GEMZAR [Suspect]
     Dosage: 800 MG/M2, UNK
     Dates: start: 20090901, end: 20090930
  2. BEVACIZUMAB [Concomitant]

REACTIONS (1)
  - CARDIOMYOPATHY [None]
